FAERS Safety Report 25311875 (Version 3)
Quarter: 2025Q2

REPORT INFORMATION
  Report Type: Spontaneous
  Country: GB (occurrence: GB)
  Receive Date: 20250514
  Receipt Date: 20250630
  Transmission Date: 20250716
  Serious: Yes (Death, Other)
  Sender: CIPLA
  Company Number: GB-Merck Healthcare KGaA-2025021280

PATIENT

DRUGS (2)
  1. GEFITINIB [Suspect]
     Active Substance: GEFITINIB
     Indication: Non-small cell lung cancer metastatic
     Dosage: 250 MILLIGRAM, QD (1 EVERY 1 DAY)
     Route: 048
     Dates: start: 20241105, end: 20250418
  2. TEPMETKO [Suspect]
     Active Substance: TEPOTINIB HYDROCHLORIDE
     Indication: Non-small cell lung cancer metastatic
     Dosage: 225 MILLIGRAM, QD (1 EVERY 1 DAY)
     Route: 048
     Dates: start: 20241105, end: 20250418

REACTIONS (3)
  - Pulmonary embolism [Fatal]
  - Cardiac arrest [Fatal]
  - Off label use [Unknown]

NARRATIVE: CASE EVENT DATE: 20250418
